FAERS Safety Report 9008960 (Version 1)
Quarter: 2013Q1

REPORT INFORMATION
  Report Type: Spontaneous
  Country: US (occurrence: US)
  Receive Date: 20130112
  Receipt Date: 20130112
  Transmission Date: 20140127
  Serious: Yes (Other)
  Sender: FDA-Public Use
  Company Number: US-009507513-0901USA02257

PATIENT
  Age: 7 Year
  Sex: Female
  Weight: 19.96 kg

DRUGS (4)
  1. SINGULAIR [Suspect]
     Indication: MULTIPLE ALLERGIES
     Route: 048
     Dates: start: 20041001, end: 20050701
  2. SINGULAIR [Suspect]
     Indication: ASTHMA
     Route: 048
     Dates: start: 20071001, end: 20071019
  3. NASONEX [Concomitant]
  4. ZYRTEC [Concomitant]

REACTIONS (8)
  - Abnormal behaviour [Unknown]
  - Anger [Unknown]
  - Confusional state [Unknown]
  - Crying [Unknown]
  - Depressed mood [Unknown]
  - Fear [Unknown]
  - Feeling abnormal [Unknown]
  - Mood swings [Unknown]
